FAERS Safety Report 20990614 (Version 1)
Quarter: 2022Q2

REPORT INFORMATION
  Report Type: Other
  Country: US (occurrence: None)
  Receive Date: 20220622
  Receipt Date: 20220622
  Transmission Date: 20220720
  Serious: No
  Sender: FDA-Public Use
  Company Number: US-ROCHE-3116686

PATIENT
  Age: 71 Year
  Sex: Female
  Weight: 102.15 kg

DRUGS (2)
  1. OCREVUS [Suspect]
     Active Substance: OCRELIZUMAB
     Indication: Relapsing multiple sclerosis
     Dosage: LAST OCRELIZUMAB DOSE WAS ON 03/JUN/2022
     Route: 042
     Dates: start: 2021
  2. MODERNA COVID-19 VACCINE [Concomitant]
     Active Substance: ELASOMERAN
     Dosage: THE SECOND PRIMARY DOSE WAS ON 13-MAR-2021, AND THE FIRST BOOSTER DOSE WAS ON 25-OCT-2021
     Dates: start: 20210212

REACTIONS (3)
  - COVID-19 [Recovered/Resolved]
  - Arthritis [Unknown]
  - Gait disturbance [Unknown]

NARRATIVE: CASE EVENT DATE: 20220513
